FAERS Safety Report 5636910-7 (Version None)
Quarter: 2008Q1

REPORT INFORMATION
  Report Type: 
  Country: None (occurrence: None)
  Receive Date: 20080225
  Receipt Date: 20080214
  Transmission Date: 20080703
  Serious: Yes (Hospitalization)
  Sender: FDA-Public Use
  Company Number: JP-ROCHE-546097

PATIENT
  Age: 12 Month
  Sex: Male
  Weight: 10 kg

DRUGS (5)
  1. ROCEPHIN [Suspect]
     Route: 041
     Dates: start: 20080126, end: 20080129
  2. DECADRON [Suspect]
     Route: 041
     Dates: start: 20080126, end: 20080129
  3. BOSMIN [Concomitant]
     Dosage: ROUTE: RESPIRATORY (INHALATION).
     Route: 055
     Dates: start: 20080126, end: 20080201
  4. ASVERIN [Concomitant]
     Route: 048
     Dates: start: 20080126, end: 20080202
  5. MUCODYNE [Concomitant]
     Route: 048
     Dates: start: 20080126, end: 20080202

REACTIONS (1)
  - HEPATIC FUNCTION ABNORMAL [None]
